FAERS Safety Report 8219222-7 (Version None)
Quarter: 2012Q1

REPORT INFORMATION
  Report Type: 
  Country: None (occurrence: None)
  Receive Date: 20120319
  Receipt Date: 20120308
  Transmission Date: 20120608
  Serious: Yes (Hospitalization)
  Sender: FDA-Public Use
  Company Number: US-JNJFOC-20120305986

PATIENT
  Sex: Female
  Weight: 56.1 kg

DRUGS (5)
  1. SEROQUEL [Concomitant]
  2. INFLIXIMAB, RECOMBINANT [Suspect]
     Indication: INFLAMMATORY BOWEL DISEASE
     Route: 042
     Dates: start: 20090923
  3. HUMIRA [Concomitant]
     Indication: INFLAMMATORY BOWEL DISEASE
     Dates: start: 20100528
  4. CELEXA [Concomitant]
  5. METHOTREXATE [Concomitant]
     Indication: INFLAMMATORY BOWEL DISEASE

REACTIONS (1)
  - ABDOMINAL PAIN UPPER [None]
